FAERS Safety Report 22384833 (Version 6)
Quarter: 2024Q2

REPORT INFORMATION
  Report Type: Report from Study
  Country: CN (occurrence: CN)
  Receive Date: 20230530
  Receipt Date: 20240501
  Transmission Date: 20240716
  Serious: Yes (Other)
  Sender: FDA-Public Use
  Company Number: CN-TAKEDA-2023TUS052769

PATIENT
  Age: 31 Year
  Sex: Female
  Weight: 55 kg

DRUGS (5)
  1. VEDOLIZUMAB [Suspect]
     Active Substance: VEDOLIZUMAB
     Indication: Colitis ulcerative
     Dosage: 300 MILLIGRAM
     Route: 042
     Dates: start: 20230207
  2. BACILLUS LICHENIFORMIS CAPSULE,LIVE [Concomitant]
     Indication: Dysbiosis
     Dosage: 0.5 GRAM, TID
     Route: 048
     Dates: start: 202201
  3. PENTASA [Concomitant]
     Active Substance: MESALAMINE
     Indication: Inflammatory bowel disease
     Dosage: 1 GRAM, QD
     Route: 054
     Dates: start: 20230718
  4. MESALAMINE [Concomitant]
     Active Substance: MESALAMINE
     Indication: Inflammatory bowel disease
     Dosage: 1000 MILLIGRAM, QID
     Route: 048
     Dates: start: 202201
  5. MESALAMINE [Concomitant]
     Active Substance: MESALAMINE
     Dosage: 1 GRAM, QD
     Route: 054
     Dates: start: 20230129, end: 202302

REACTIONS (2)
  - Leukopenia [Recovered/Resolved]
  - Influenza [Recovered/Resolved]

NARRATIVE: CASE EVENT DATE: 20230316
